FAERS Safety Report 7399394-7 (Version None)
Quarter: 2011Q2

REPORT INFORMATION
  Report Type: 
  Country: None (occurrence: None)
  Receive Date: 20110407
  Receipt Date: 20110227
  Transmission Date: 20111010
  Serious: Yes (Other)
  Sender: FDA-Public Use
  Company Number: PHHY2010US65840

PATIENT
  Sex: Female

DRUGS (9)
  1. EXTAVIA [Suspect]
     Dosage: 0.25 MG, QOD
     Route: 058
     Dates: start: 20100928, end: 20110125
  2. EXTAVIA [Suspect]
     Indication: MULTIPLE SCLEROSIS
     Dosage: 0.25 MG, QOD
     Route: 058
     Dates: start: 20100917, end: 20110119
  3. BACLOFEN [Concomitant]
     Dosage: 10 MG, TID
  4. EXTAVIA [Suspect]
     Dosage: 1 ML, QOD
     Route: 058
  5. EXTAVIA [Suspect]
     Dosage: 0.25 MG, QOD
     Route: 058
     Dates: start: 20100921, end: 20110301
  6. EXTAVIA [Suspect]
     Dosage: 0.125 MG, QOD
  7. CYMBALTA [Concomitant]
     Dosage: 60 MG, QD
  8. GABAPENTIN [Concomitant]
     Indication: PARAESTHESIA
     Dosage: 2 DF, BID
  9. LOTREL [Concomitant]
     Dosage: 1040 (UNIT UNSPECIFIED), QD

REACTIONS (34)
  - DEPRESSION [None]
  - SKIN LESION [None]
  - HEADACHE [None]
  - OPEN WOUND [None]
  - CONVULSION [None]
  - MUSCLE TWITCHING [None]
  - PYREXIA [None]
  - ABDOMINAL PAIN [None]
  - DECREASED APPETITE [None]
  - FATIGUE [None]
  - INJECTION SITE PAIN [None]
  - INJECTION SITE HAEMATOMA [None]
  - STRESS [None]
  - STARING [None]
  - FRUSTRATION [None]
  - BACK PAIN [None]
  - ABDOMINAL PAIN UPPER [None]
  - ABDOMINAL WALL INFECTION [None]
  - INJECTION SITE NECROSIS [None]
  - DYSPNOEA [None]
  - MUSCLE SPASMS [None]
  - MYALGIA [None]
  - DYSKINESIA [None]
  - HYPERPHAGIA [None]
  - NECK PAIN [None]
  - COUGH [None]
  - HYPERHIDROSIS [None]
  - INFLUENZA LIKE ILLNESS [None]
  - INJECTION SITE MASS [None]
  - INJECTION SITE ERYTHEMA [None]
  - PARAESTHESIA [None]
  - MULTIPLE SCLEROSIS RELAPSE [None]
  - ASTHENIA [None]
  - NAUSEA [None]
